FAERS Safety Report 21901551 (Version 1)
Quarter: 2023Q1

REPORT INFORMATION
  Report Type: Spontaneous
  Country: US (occurrence: None)
  Receive Date: 20230123
  Receipt Date: 20230123
  Transmission Date: 20230417
  Serious: Yes (Hospitalization)
  Sender: FDA-Public Use
  Company Number: 2023A014094

PATIENT
  Age: 1000 Month
  Sex: Female
  Weight: 59 kg

DRUGS (2)
  1. LYNPARZA [Suspect]
     Active Substance: OLAPARIB
     Indication: Lung neoplasm malignant
     Route: 048
     Dates: start: 20221103
  2. LYNPARZA [Suspect]
     Active Substance: OLAPARIB
     Indication: Lung neoplasm malignant
     Route: 048

REACTIONS (3)
  - Anaemia [Unknown]
  - Fatigue [Not Recovered/Not Resolved]
  - Off label use [Unknown]

NARRATIVE: CASE EVENT DATE: 20230101
